FAERS Safety Report 6334935-X (Version None)
Quarter: 2009Q3

REPORT INFORMATION
  Report Type: 
  Country: None (occurrence: None)
  Receive Date: 20090831
  Receipt Date: 20090811
  Transmission Date: 20100115
  Serious: Yes (Hospitalization)
  Sender: FDA-Public Use
  Company Number: DE-BRISTOL-MYERS SQUIBB COMPANY-14686794

PATIENT
  Age: 60 Year
  Sex: Female
  Weight: 100 kg

DRUGS (9)
  1. ENTECAVIR [Suspect]
     Indication: HEPATITIS B
     Dosage: TAKEN EVERY 2-3 DAYS INTERRUPTED ON 09JAN09 RESTARTED ON 15JAN09 STOPPED ON 08FEB09
     Route: 048
     Dates: end: 20090208
  2. SIROLIMUS [Concomitant]
  3. SPIRONOLACTONE [Concomitant]
  4. TORASEMIDE [Concomitant]
  5. HYDROCHLOROTHIAZIDE [Concomitant]
  6. PREDNISOLONE [Concomitant]
  7. LACTULOSE [Concomitant]
  8. PANTOPRAZOLE SODIUM [Concomitant]
  9. LEVOFLOXACIN [Concomitant]

REACTIONS (1)
  - LACTIC ACIDOSIS [None]
